FAERS Safety Report 7570573-9 (Version None)
Quarter: 2011Q2

REPORT INFORMATION
  Report Type: 
  Country: None (occurrence: None)
  Receive Date: 20110624
  Receipt Date: 20110411
  Transmission Date: 20111010
  Serious: No
  Sender: FDA-Public Use
  Company Number: US-ALLERGAN-1105015US

PATIENT
  Age: 52 Year
  Sex: Female

DRUGS (4)
  1. LATISSE [Suspect]
  2. LATISSE [Suspect]
     Dosage: UNK
     Dates: start: 20110410
  3. LATISSE [Suspect]
     Dosage: UNK
     Dates: start: 20090101, end: 20110328
  4. LATISSE [Suspect]
     Indication: GROWTH OF EYELASHES
     Dosage: UNK
     Dates: start: 20110329, end: 20110409

REACTIONS (4)
  - ABNORMAL SENSATION IN EYE [None]
  - EYE PRURITUS [None]
  - INCORRECT DOSE ADMINISTERED [None]
  - EYE IRRITATION [None]
